FAERS Safety Report 7016622-8 (Version None)
Quarter: 2010Q3

REPORT INFORMATION
  Report Type: 
  Country: None (occurrence: None)
  Receive Date: 20100927
  Receipt Date: 20100917
  Transmission Date: 20110219
  Serious: Yes (Hospitalization)
  Sender: FDA-Public Use
  Company Number: B0675144A

PATIENT
  Sex: Male

DRUGS (7)
  1. VALACYCLOVIR HYDROCHLORIDE [Suspect]
     Indication: HERPES OPHTHALMIC
     Route: 048
     Dates: start: 20100401, end: 20100504
  2. PAROXETINE HCL [Concomitant]
     Route: 065
  3. METFORMIN HCL [Concomitant]
     Route: 065
  4. PROGRAF [Concomitant]
     Indication: LIVER TRANSPLANT
     Route: 065
     Dates: start: 20011201, end: 20100201
  5. CELLCEPT [Concomitant]
     Indication: LIVER TRANSPLANT
     Route: 065
     Dates: start: 20090501
  6. COAPROVEL [Concomitant]
     Route: 065
  7. TACROLIMUS [Concomitant]
     Indication: LIVER TRANSPLANT
     Route: 065
     Dates: start: 20100201

REACTIONS (3)
  - OEDEMA PERIPHERAL [None]
  - OLIGURIA [None]
  - WEIGHT INCREASED [None]
